FAERS Safety Report 7735579-5 (Version None)
Quarter: 2011Q3

REPORT INFORMATION
  Report Type: 
  Country: None (occurrence: None)
  Receive Date: 20110907
  Receipt Date: 20110810
  Transmission Date: 20111222
  Serious: Yes (Hospitalization)
  Sender: FDA-Public Use
  Company Number: AU-B.I. PHARMACEUTICALS,INC./RIDGEFIELD-2011-AU-01126AU

PATIENT
  Sex: Male

DRUGS (3)
  1. PRADAXA [Suspect]
     Dosage: 300 MG
     Dates: start: 20110701
  2. ASPIRIN [Suspect]
  3. PLAVIX [Suspect]

REACTIONS (2)
  - INFARCTION [None]
  - DRUG NAME CONFUSION [None]
